FAERS Safety Report 5233729-6 (Version None)
Quarter: 2007Q1

REPORT INFORMATION
  Report Type: 
  Country: None (occurrence: None)
  Receive Date: 20061208
  Receipt Date: 20060320
  Transmission Date: 20070707
  Serious: Yes (Other)
  Sender: FDA-Public Use
  Company Number: 2006UW04758

PATIENT
  Age: 55 Year
  Sex: Male
  Weight: 69.853 kg

DRUGS (9)
  1. CRESTOR [Suspect]
     Indication: HIGH DENSITY LIPOPROTEIN INCREASED
     Dosage: 10 MG DAILY PO
     Route: 048
     Dates: start: 20050901
  2. CRESTOR [Suspect]
     Indication: LOW DENSITY LIPOPROTEIN INCREASED
     Dosage: 10 MG DAILY PO
     Route: 048
     Dates: start: 20050901
  3. ZETIA [Concomitant]
  4. FLAXSEED OIL [Concomitant]
  5. FISH OIL [Concomitant]
  6. CLONIDINE [Concomitant]
  7. ENALAPRIL MALEATE [Concomitant]
  8. NORVASC [Concomitant]
  9. COREG [Concomitant]

REACTIONS (1)
  - ANTINUCLEAR ANTIBODY INCREASED [None]
